FAERS Safety Report 8212658-X (Version None)
Quarter: 2012Q1

REPORT INFORMATION
  Report Type: 
  Country: None (occurrence: None)
  Receive Date: 20120315
  Receipt Date: 20120307
  Transmission Date: 20120608
  Serious: Yes (Hospitalization)
  Sender: FDA-Public Use
  Company Number: US-BAYER-2012-003059

PATIENT
  Age: 20 Year
  Sex: Female
  Weight: 51.247 kg

DRUGS (5)
  1. PAXIL [Concomitant]
  2. YAZ [Suspect]
     Indication: CONTRACEPTION
     Dosage: UNK
     Route: 048
     Dates: start: 20050101, end: 20110101
  3. DROSPIRENONE AND ETHINYL ESTRADIOL [Suspect]
     Indication: CONTRACEPTION
     Dosage: UNK
     Route: 048
     Dates: start: 20110401, end: 20110601
  4. AUGMENTIN '125' [Concomitant]
  5. ZYRTEC [Concomitant]

REACTIONS (11)
  - GASTROINTESTINAL PAIN [None]
  - CHOLECYSTITIS CHRONIC [None]
  - CHOLECYSTECTOMY [None]
  - NAUSEA [None]
  - INJURY [None]
  - DEPRESSION [None]
  - PAIN [None]
  - EMOTIONAL DISTRESS [None]
  - GASTROINTESTINAL INJURY [None]
  - DIARRHOEA [None]
  - NERVOUSNESS [None]
